FAERS Safety Report 4389357-8 (Version None)
Quarter: 2004Q3

REPORT INFORMATION
  Report Type: 
  Country: None (occurrence: None)
  Receive Date: 20040702
  Receipt Date: 20040622
  Transmission Date: 20050211
  Serious: Yes (Life-Threatening, Hospitalization)
  Sender: FDA-Public Use
  Company Number: DE-BRISTOL-MYERS SQUIBB COMPANY-12621967

PATIENT
  Age: 71 Year
  Sex: Female

DRUGS (7)
  1. CETUXIMAB [Suspect]
     Indication: COLORECTAL CANCER METASTATIC
     Dosage: INITIAL INFUSION. TREATMENT WAS DELAYED DUE TO EVENT.
     Route: 042
     Dates: start: 20040618, end: 20040618
  2. IRINOTECAN [Suspect]
     Indication: COLORECTAL CANCER METASTATIC
     Route: 042
     Dates: start: 20040618, end: 20040618
  3. ATROPINE [Concomitant]
     Indication: PROPHYLAXIS
     Dosage: ADMINISTERED AS ^PROPHYLAXIS FOR CHOLINERGY REACTION UNDER CAMPTO^
     Dates: start: 20040618
  4. TROPISETRON [Concomitant]
     Indication: PROPHYLAXIS
     Dosage: ADMINISTERED AS ^VOMITING PROPHYLAXIS^
     Dates: start: 20040618
  5. DIMETINDENE MALEATE [Concomitant]
     Indication: PROPHYLAXIS
     Dosage: ADMINISTERED AS ^ALLERGY PROPHYLAXIS^
     Dates: start: 20040618
  6. DELIX [Concomitant]
     Indication: HYPERTENSION
  7. CONCOR [Concomitant]
     Indication: HYPERTENSION

REACTIONS (1)
  - TRANSIENT ISCHAEMIC ATTACK [None]
